FAERS Safety Report 9179757 (Version 1)
Quarter: 2012Q4

REPORT INFORMATION
  Report Type: Report from Study
  Country: CA (occurrence: CA)
  Receive Date: 20121029
  Receipt Date: 20121029
  Transmission Date: 20130627
  Serious: Yes (Other)
  Sender: FDA-Public Use
  Company Number: CA-JNJFOC-20121010314

PATIENT
  Age: 51 None
  Sex: Female
  Weight: 60 kg

DRUGS (6)
  1. REMICADE [Suspect]
     Indication: RHEUMATOID ARTHRITIS
     Dosage: 112th infusion
     Route: 042
     Dates: start: 20121017
  2. REMICADE [Suspect]
     Indication: RHEUMATOID ARTHRITIS
     Route: 042
     Dates: start: 200510
  3. METHOTREXATE [Concomitant]
     Indication: RHEUMATOID ARTHRITIS
     Route: 048
  4. SULFASALAZINE [Concomitant]
     Indication: RHEUMATOID ARTHRITIS
     Route: 048
  5. VENTOLIN [Concomitant]
     Indication: ASTHMA
     Route: 065
  6. AMITRIPTYLIN [Concomitant]
     Indication: FIBROMYALGIA
     Route: 065

REACTIONS (2)
  - Osteoporosis [Not Recovered/Not Resolved]
  - Foot fracture [Not Recovered/Not Resolved]
